FAERS Safety Report 19315568 (Version 1)
Quarter: 2021Q2

REPORT INFORMATION
  Report Type: Spontaneous
  Country: FR (occurrence: FR)
  Receive Date: 20210527
  Receipt Date: 20210527
  Transmission Date: 20210717
  Serious: Yes (Other)
  Sender: FDA-Public Use
  Company Number: FR-SA-2021SA135491

PATIENT
  Age: 37 Year
  Sex: Female

DRUGS (3)
  1. FRAXIPARINE [Suspect]
     Active Substance: NADROPARIN CALCIUM
     Indication: ANTICOAGULANT THERAPY
     Dosage: 0.6 ML, QD
  2. LOVENOX [Suspect]
     Active Substance: ENOXAPARIN SODIUM
     Dosage: 0.4 ML, BID
  3. ASPEGIC (ACETYLSALICYLATE LYSINE) [Suspect]
     Active Substance: ASPIRIN DL-LYSINE
     Indication: ANTIPLATELET THERAPY
     Dosage: 100 MG, QD

REACTIONS (7)
  - Injection site nodule [Recovered/Resolved]
  - Skin lesion [Recovered/Resolved]
  - Rash pruritic [Recovered/Resolved]
  - Dermatitis allergic [Unknown]
  - Eosinophilia [Recovered/Resolved]
  - Injection site pain [Recovered/Resolved]
  - Maternal exposure during pregnancy [Unknown]
